FAERS Safety Report 14857779 (Version 1)
Quarter: 2018Q2

REPORT INFORMATION
  Report Type: Spontaneous
  Country: US (occurrence: US)
  Receive Date: 20180508
  Receipt Date: 20180508
  Transmission Date: 20180711
  Serious: Yes (Death, Other)
  Sender: FDA-Public Use
  Company Number: US-CIPLA LTD.-2018US17055

PATIENT

DRUGS (3)
  1. OXALIPLATIN. [Suspect]
     Active Substance: OXALIPLATIN
     Indication: HEPATOCELLULAR CARCINOMA
     Dosage: 130 MG/M2, ON DAY 1
     Route: 042
  2. CAPECITABINE. [Suspect]
     Active Substance: CAPECITABINE
     Indication: HEPATOCELLULAR CARCINOMA
     Dosage: 825 MG/M2, BID, ON DAY 1 TO DAY 14
     Route: 048
  3. BEVACIZUMAB. [Suspect]
     Active Substance: BEVACIZUMAB
     Indication: HEPATOCELLULAR CARCINOMA
     Dosage: 5 MG/KG, ON DAY 1
     Route: 042

REACTIONS (5)
  - Malignant neoplasm progression [Unknown]
  - Ascites [Unknown]
  - Fatigue [Unknown]
  - Oedema peripheral [Unknown]
  - Death [Fatal]
